FAERS Safety Report 4766453-4 (Version None)
Quarter: 2005Q3

REPORT INFORMATION
  Report Type: 
  Country: None (occurrence: None)
  Receive Date: 20050912
  Receipt Date: 20050427
  Transmission Date: 20060218
  Serious: Yes (Death, Life-Threatening, Hospitalization, Disabling)
  Sender: FDA-Public Use
  Company Number: GB-ROCHE-403200

PATIENT
  Age: 44 Year
  Sex: Female

DRUGS (88)
  1. DACLIZUMAB [Suspect]
     Route: 042
     Dates: start: 20050415, end: 20050415
  2. DACLIZUMAB [Suspect]
     Route: 042
     Dates: start: 20050422, end: 20050422
  3. MYCOPHENOLATE MOFETIL [Suspect]
     Route: 042
     Dates: start: 20050415, end: 20050415
  4. MYCOPHENOLATE MOFETIL [Suspect]
     Route: 042
     Dates: start: 20050416, end: 20050418
  5. MYCOPHENOLATE MOFETIL [Suspect]
     Route: 042
     Dates: start: 20050419, end: 20050419
  6. MYCOPHENOLATE MOFETIL [Suspect]
     Route: 048
     Dates: start: 20050420, end: 20050423
  7. MYCOPHENOLATE MOFETIL [Suspect]
     Route: 048
     Dates: start: 20050424, end: 20050424
  8. MYCOPHENOLATE MOFETIL [Suspect]
     Route: 048
     Dates: start: 20050426, end: 20050426
  9. MYCOPHENOLATE MOFETIL [Suspect]
     Route: 048
     Dates: start: 20050427, end: 20050504
  10. MYCOPHENOLATE MOFETIL [Suspect]
     Route: 048
     Dates: start: 20050505, end: 20050505
  11. MYCOPHENOLATE MOFETIL [Suspect]
     Route: 048
     Dates: start: 20050506, end: 20050506
  12. MYCOPHENOLATE MOFETIL [Suspect]
     Route: 048
     Dates: start: 20050507, end: 20050507
  13. MYCOPHENOLATE MOFETIL [Suspect]
     Route: 048
     Dates: start: 20050508, end: 20050516
  14. MYCOPHENOLATE MOFETIL [Suspect]
     Dosage: 1000MG AM + 500 MG PM.
     Route: 048
     Dates: start: 20050517, end: 20050526
  15. TACROLIMUS [Suspect]
     Dosage: DOSES ADJUSTED TO REACH PREDEFINED TARGET LEVELS.
     Route: 048
     Dates: start: 20050420, end: 20050423
  16. TACROLIMUS [Suspect]
     Dosage: ADVERSE EVENT/TOXICITY
     Route: 048
     Dates: start: 20050424, end: 20050424
  17. TACROLIMUS [Suspect]
     Route: 048
     Dates: start: 20050426, end: 20050426
  18. TACROLIMUS [Suspect]
     Dosage: DOSES ADJUSTED TO REACH PREDEFINED TARGET LEVELS.
     Route: 048
     Dates: start: 20050429, end: 20050504
  19. TACROLIMUS [Suspect]
     Dosage: ADVERSE EVENT/TOXICITY
     Route: 048
     Dates: start: 20050505, end: 20050505
  20. TACROLIMUS [Suspect]
     Dosage: DOSE ADJUSTED TO REACH PREDEFINED TARGET LEVELS.
     Route: 048
     Dates: start: 20050506, end: 20050506
  21. TACROLIMUS [Suspect]
     Dosage: ADVERSE EVENT/TOXICITY.
     Route: 048
     Dates: start: 20050507, end: 20050507
  22. TACROLIMUS [Suspect]
     Route: 048
     Dates: start: 20050508, end: 20050508
  23. TACROLIMUS [Suspect]
     Route: 048
     Dates: start: 20050509, end: 20050509
  24. TACROLIMUS [Suspect]
     Dosage: DOSES ADJUSTED TO REACH PREDEFINED TARGET LEVELS.
     Route: 048
     Dates: start: 20050510, end: 20050531
  25. TACROLIMUS [Suspect]
     Dosage: DOSAGE ADJUSTED TO REACH PREDEFINED TARTGET LEVELS
     Route: 048
     Dates: start: 20050602, end: 20050613
  26. HYDROCORTISONE [Suspect]
     Dosage: DOSES TAPERED ACCORDING TO LOCAL PROTOCOL.
     Route: 065
     Dates: start: 20050415, end: 20050418
  27. HYDROCORTISONE [Suspect]
     Dosage: ADVERSE EVENT/TOXICITY.
     Route: 065
     Dates: start: 20050527, end: 20050527
  28. HYDROCORTISONE [Suspect]
     Dosage: DOSE TAPERED ACCORDING TO LOCAL PROTOCOL.
     Route: 065
     Dates: start: 20050528, end: 20050528
  29. HYDROCORTISONE [Suspect]
     Dosage: ADVERSE EVENT/TOXICITY.
     Route: 065
     Dates: start: 20050529, end: 20050529
  30. PREDNISOLONE [Suspect]
     Dosage: DOSES TAPERED ACCORDING TO LOCAL PROTOCOL.
     Route: 065
     Dates: start: 20050418, end: 20050423
  31. PREDNISOLONE [Suspect]
     Dosage: ADVERSE EVENT/TOXICITY
     Route: 065
     Dates: start: 20050424, end: 20050424
  32. PREDNISOLONE [Suspect]
     Dosage: ADVERSE EVENT/TOXICITY
     Route: 065
     Dates: start: 20050426, end: 20050426
  33. PREDNISOLONE [Suspect]
     Dosage: TAPERED ACCORDING TO LOCAL PROTOCOL
     Route: 065
     Dates: start: 20050427, end: 20050504
  34. PREDNISOLONE [Suspect]
     Dosage: ADVERSE EVENT/TOXICITY
     Route: 065
     Dates: start: 20050505, end: 20050505
  35. PREDNISOLONE [Suspect]
     Route: 065
     Dates: start: 20050506, end: 20050507
  36. PREDNISOLONE [Suspect]
     Dosage: DOSES TAPERED ACCORDING TO LOCAL PROTOCOL.
     Route: 065
     Dates: start: 20050508, end: 20050526
  37. TAZOCIN [Concomitant]
     Indication: ANTIBIOTIC LEVEL
     Dates: start: 20050415
  38. FLUCONAZOLE [Concomitant]
     Indication: LOCAL ANTIFUNGAL TREATMENT
     Dates: start: 20050415, end: 20050531
  39. CALCIUM CHLORIDE [Concomitant]
     Indication: UNEVALUABLE EVENT
     Dates: start: 20050415
  40. POTASSIUM CHLORIDE [Concomitant]
     Indication: UNEVALUABLE EVENT
     Dates: start: 20050509, end: 20050614
  41. ALFENTANIL [Concomitant]
     Dates: start: 20050415, end: 20050610
  42. PROPOFOL [Concomitant]
     Indication: ANAESTHESIA
     Dates: start: 20050415, end: 20050614
  43. TRACRIUM [Concomitant]
     Dates: start: 20050415, end: 20050415
  44. NORADRENALINE [Concomitant]
     Dates: start: 20050415, end: 20050415
  45. TRASYLOL [Concomitant]
     Dates: start: 20050415, end: 20050415
  46. MORPHINE [Concomitant]
     Dates: start: 20050415, end: 20050503
  47. MEROPENEM [Concomitant]
     Indication: ANTIBIOTIC LEVEL
     Dates: start: 20050501, end: 20050613
  48. VANCOMYCIN [Concomitant]
     Indication: INFECTION
     Dates: start: 20050504, end: 20050614
  49. VALGANCICLOVIR [Concomitant]
     Indication: SYSTEMIC ANTIVIRAL TREATMENT
     Dates: start: 20050504, end: 20050613
  50. ASPIRIN [Concomitant]
     Indication: PROPHYLAXIS
     Dates: start: 20050427, end: 20050507
  51. COTRIMOXAZOLE [Concomitant]
     Indication: ANTIBIOTIC LEVEL
     Dates: start: 20050427, end: 20050613
  52. CYCLIZINE [Concomitant]
     Dates: start: 20050504, end: 20050614
  53. NYSTATIN [Concomitant]
     Dates: start: 20050426, end: 20050614
  54. PARACETAMOL [Concomitant]
     Dates: start: 20050426, end: 20050614
  55. LANSOPRAZOLE [Concomitant]
     Dates: start: 20050427, end: 20050614
  56. ALBUMIN (HUMAN) [Concomitant]
     Dates: start: 20050504, end: 20050506
  57. METOCLOPRAMIDE [Concomitant]
     Dates: start: 20050426, end: 20050504
  58. TRAMADOL HCL [Concomitant]
     Dates: start: 20050504, end: 20050614
  59. LACTULOSE [Concomitant]
     Dates: start: 20050430, end: 20050501
  60. METRONIDAZOLE [Concomitant]
     Dates: start: 20050504, end: 20050614
  61. CIPROXIN [Concomitant]
     Dates: start: 20050426, end: 20050429
  62. ATROVENT [Concomitant]
     Dates: start: 20050523, end: 20050523
  63. MIDAZOLAM [Concomitant]
     Dates: start: 20050505, end: 20050505
  64. OMEPRAZOLE [Concomitant]
     Dates: start: 20050507, end: 20050511
  65. ESOMEPRAZOLE [Concomitant]
     Dates: start: 20050506, end: 20050614
  66. VITAMIN K [Concomitant]
     Dates: start: 20050507, end: 20050527
  67. ACETYLCYSTEINE [Concomitant]
     Dates: start: 20050505, end: 20050614
  68. SUCRALFATE [Concomitant]
     Dates: start: 20050506, end: 20050607
  69. MORPHINE SULFATE [Concomitant]
     Dosage: INFUSION.
     Dates: start: 20050427, end: 20050614
  70. FRESH FROZEN PLASMA [Concomitant]
     Dates: start: 20050505, end: 20050507
  71. BUDESONIDE [Concomitant]
     Indication: PROPHYLAXIS
     Dates: start: 20050529, end: 20050613
  72. MUPIROCIN [Concomitant]
     Indication: PROPHYLAXIS
     Dates: start: 20050527, end: 20050613
  73. IPRATROPIUM BROMIDE [Concomitant]
     Dates: start: 20050529, end: 20050613
  74. CHLORHEXIDINE [Concomitant]
     Dates: start: 20050528, end: 20050613
  75. AMIODARONE [Concomitant]
     Indication: ATRIAL FIBRILLATION
     Dates: start: 20050531, end: 20050606
  76. FUNGIZONE [Concomitant]
     Dates: start: 20050602, end: 20050613
  77. BENZYLPENICILLIN [Concomitant]
     Dates: start: 20050611, end: 20050613
  78. GLUTAMINE POWDER [Concomitant]
     Dates: start: 20050603, end: 20050613
  79. LINEZOLID [Concomitant]
     Dates: start: 20050605, end: 20050613
  80. RAMIPRIL [Concomitant]
     Dates: start: 20050530, end: 20050605
  81. VITAMIN B/VITAMIN C [Concomitant]
     Dates: start: 20050529, end: 20050613
  82. METHYLENE BLUE [Concomitant]
     Dates: start: 20050603, end: 20050603
  83. FUROSEMIDE [Concomitant]
     Dates: start: 20050528, end: 20050605
  84. HALOPERIDOL [Concomitant]
     Dates: start: 20050528, end: 20050528
  85. METOLAZONE [Concomitant]
     Dates: start: 20050607, end: 20050607
  86. ZOPICLONE [Concomitant]
     Indication: SEDATION
     Dates: start: 20050531, end: 20050612
  87. MAGNESIUM SULFATE [Concomitant]
     Dates: start: 20050529, end: 20050606
  88. PHOSPHATE [Concomitant]
     Dates: start: 20050611, end: 20050611

REACTIONS (24)
  - ABDOMINAL SEPSIS [None]
  - ASCITES [None]
  - ATRIAL FIBRILLATION [None]
  - BLOOD ALBUMIN DECREASED [None]
  - BLOOD CULTURE POSITIVE [None]
  - CELLULITIS [None]
  - COMPLICATIONS OF TRANSPLANTED LIVER [None]
  - DIARRHOEA [None]
  - ENTEROCOCCAL INFECTION [None]
  - ESCHERICHIA INFECTION [None]
  - GASTROINTESTINAL HAEMORRHAGE [None]
  - HAEMATOMA [None]
  - HAEMOGLOBIN DECREASED [None]
  - LACERATION [None]
  - MELAENA [None]
  - MULTI-ORGAN FAILURE [None]
  - OEDEMA PERIPHERAL [None]
  - OXYGEN SATURATION DECREASED [None]
  - PLEURAL EFFUSION [None]
  - PNEUMONIA [None]
  - RENAL IMPAIRMENT [None]
  - SKIN DISORDER [None]
  - WHITE BLOOD CELL COUNT INCREASED [None]
  - WOUND SECRETION [None]
